FAERS Safety Report 20920585 (Version 12)
Quarter: 2024Q2

REPORT INFORMATION
  Report Type: Report from Study
  Country: CA (occurrence: CA)
  Receive Date: 20220606
  Receipt Date: 20240408
  Transmission Date: 20240716
  Serious: Yes (Life-Threatening, Hospitalization, Other)
  Sender: FDA-Public Use
  Company Number: CA-BRISTOL-MYERS SQUIBB COMPANY-2022-052032

PATIENT
  Age: 86 Year
  Sex: Male
  Weight: 86.6 kg

DRUGS (5)
  1. REBLOZYL [Suspect]
     Active Substance: LUSPATERCEPT-AAMT
     Indication: Anaemia
     Dosage: FREQUENCY: 1/3 WEEKS
     Route: 058
     Dates: start: 20210818, end: 20230131
  2. REBLOZYL [Suspect]
     Active Substance: LUSPATERCEPT-AAMT
  3. REBLOZYL [Suspect]
     Active Substance: LUSPATERCEPT-AAMT
  4. REBLOZYL [Suspect]
     Active Substance: LUSPATERCEPT-AAMT
     Route: 058
     Dates: start: 2021
  5. REBLOZYL [Suspect]
     Active Substance: LUSPATERCEPT-AAMT
     Route: 058

REACTIONS (6)
  - Pneumonia haemophilus [Recovered/Resolved]
  - Atrial flutter [Recovering/Resolving]
  - Acute kidney injury [Unknown]
  - Weight increased [Unknown]
  - Haemoglobin decreased [Recovering/Resolving]
  - Inappropriate schedule of product administration [Unknown]

NARRATIVE: CASE EVENT DATE: 20230109
